FAERS Safety Report 7775124-1 (Version None)
Quarter: 2011Q3

REPORT INFORMATION
  Report Type: 
  Country: None (occurrence: None)
  Receive Date: 20110923
  Receipt Date: 20110914
  Transmission Date: 20111222
  Serious: Yes (Other)
  Sender: FDA-Public Use
  Company Number: US-JNJFOC-20110906807

PATIENT
  Age: 40 Year
  Sex: Male

DRUGS (2)
  1. REMICADE [Suspect]
     Route: 042
     Dates: end: 20110801
  2. REMICADE [Suspect]
     Indication: COLITIS ULCERATIVE
     Route: 042
     Dates: start: 20110801

REACTIONS (4)
  - ARTHRALGIA [None]
  - LUPUS-LIKE SYNDROME [None]
  - INAPPROPRIATE SCHEDULE OF DRUG ADMINISTRATION [None]
  - INFUSION RELATED REACTION [None]
